FAERS Safety Report 20494193 (Version 1)
Quarter: 2022Q1

REPORT INFORMATION
  Report Type: Spontaneous
  Country: US (occurrence: US)
  Receive Date: 20220221
  Receipt Date: 20220221
  Transmission Date: 20220424
  Serious: Yes (Other)
  Sender: FDA-Public Use
  Company Number: US-CELGENE-USA-20220204835

PATIENT
  Sex: Male
  Weight: 88.076 kg

DRUGS (4)
  1. REVLIMID [Suspect]
     Active Substance: LENALIDOMIDE
     Indication: Plasma cell myeloma
     Dosage: DOSE : 15MG;     FREQ : 3 WEEKS ON 1 WEEK OFF
     Route: 048
     Dates: start: 202105
  2. REVLIMID [Suspect]
     Active Substance: LENALIDOMIDE
     Dosage: DOSE : 15MG;     FREQ : 3 WEEKS ON 1 WEEK OFF
     Route: 048
     Dates: start: 202110
  3. REVLIMID [Suspect]
     Active Substance: LENALIDOMIDE
     Dosage: DOSE : 15MG;     FREQ : 3 WEEKS ON 1 WEEK OFF
     Route: 048
  4. DEXAMETHASONE [Concomitant]
     Active Substance: DEXAMETHASONE
     Indication: Product used for unknown indication
     Route: 065

REACTIONS (1)
  - Neuropathy peripheral [Unknown]
